FAERS Safety Report 9095658 (Version 1)
Quarter: 2013Q1

REPORT INFORMATION
  Report Type: Spontaneous
  Country: US (occurrence: US)
  Receive Date: 20130219
  Receipt Date: 20130219
  Transmission Date: 20140127
  Serious: Yes (Other)
  Sender: FDA-Public Use
  Company Number: US-PFIZER INC-2013059610

PATIENT
  Age: 45 Year
  Sex: Female
  Weight: 113 kg

DRUGS (6)
  1. XANAX [Suspect]
     Indication: ANXIETY
     Dosage: 2 MG, EVERY 6 HOURS
     Dates: start: 2003
  2. XANAX [Suspect]
     Indication: PANIC ATTACK
  3. CLONAZEPAM [Suspect]
     Dosage: 10 MG, AS NEEDED (ONE TO TWO TIMES)
     Dates: start: 2012
  4. RESTORIL [Suspect]
     Dosage: UNK, 1X/DAY
  5. LORTAB [Concomitant]
     Indication: ARTHRITIS
     Dosage: ^10MG^, 4X/DAY
  6. LAMICTAL [Concomitant]
     Dosage: 200 MG, DAILY

REACTIONS (4)
  - Cerebrovascular accident [Unknown]
  - Blood pressure increased [Not Recovered/Not Resolved]
  - Tooth fracture [Unknown]
  - Dry mouth [Unknown]
